FAERS Safety Report 23174999 (Version 1)
Quarter: 2023Q4

REPORT INFORMATION
  Report Type: Spontaneous
  Country: TW (occurrence: TW)
  Receive Date: 20231112
  Receipt Date: 20231112
  Transmission Date: 20240110
  Serious: Yes (Other)
  Sender: FDA-Public Use
  Company Number: TW-002147023-NVSC2023TW240753

PATIENT
  Age: 41 Year
  Sex: Female

DRUGS (2)
  1. RIBOCICLIB [Suspect]
     Active Substance: RIBOCICLIB
     Indication: Ascites
     Dosage: UNK
     Route: 065
     Dates: start: 202006, end: 202206
  2. RIBOCICLIB [Suspect]
     Active Substance: RIBOCICLIB
     Indication: Abdominal distension

REACTIONS (2)
  - Thrombocytopenia [Unknown]
  - Metastases to bone [Unknown]
